FAERS Safety Report 21885136 (Version 3)
Quarter: 2023Q2

REPORT INFORMATION
  Report Type: Spontaneous
  Country: CA (occurrence: CA)
  Receive Date: 20230119
  Receipt Date: 20230508
  Transmission Date: 20230721
  Serious: Yes (Other)
  Sender: FDA-Public Use
  Company Number: CA-PFIZER INC-202300021781

PATIENT
  Age: 48 Year
  Sex: Male

DRUGS (5)
  1. XELJANZ XR [Suspect]
     Active Substance: TOFACITINIB CITRATE
     Indication: Rheumatoid arthritis
     Dosage: 11 MG, 1X/DAY-DISCONTINUED
     Route: 048
     Dates: start: 202211, end: 202301
  2. ABRILADA [Concomitant]
     Active Substance: ADALIMUMAB-AFZB
     Indication: Rheumatoid arthritis
     Dosage: EVERY 2 WEEK (PREFILLED SYRINGE-DISCONTINUED)
     Route: 058
     Dates: start: 20230119, end: 2023
  3. ERELZI [Concomitant]
     Active Substance: ETANERCEPT-SZZS
     Dosage: UNK
     Dates: start: 202111, end: 202211
  4. PREDNISONE [Concomitant]
     Active Substance: PREDNISONE
     Dosage: 20 MG, DAILY (IN THE MORNING) (BUT OFTEN TAKING UP TO 40-50MG DAILY IN TOTAL)
  5. PREDNISONE [Concomitant]
     Active Substance: PREDNISONE
     Dosage: 15 MG, DAILY

REACTIONS (12)
  - Musculoskeletal disorder [Unknown]
  - Drug ineffective [Unknown]
  - Condition aggravated [Unknown]
  - Arthropathy [Unknown]
  - Pain [Unknown]
  - Anxiety [Unknown]
  - Fall [Unknown]
  - Skin laceration [Recovering/Resolving]
  - Tender joint count increased [Not Recovered/Not Resolved]
  - Musculoskeletal stiffness [Not Recovered/Not Resolved]
  - Peripheral swelling [Unknown]
  - Joint range of motion decreased [Unknown]

NARRATIVE: CASE EVENT DATE: 20221108
